FAERS Safety Report 20585384 (Version 1)
Quarter: 2022Q1

REPORT INFORMATION
  Report Type: Spontaneous
  Country: US (occurrence: US)
  Receive Date: 20220312
  Receipt Date: 20220312
  Transmission Date: 20220423
  Serious: No
  Sender: FDA-Public Use
  Company Number: US-CELGENE-USA-20220303417

PATIENT
  Age: 46 Year
  Sex: Female

DRUGS (2)
  1. REVLIMID [Suspect]
     Active Substance: LENALIDOMIDE
     Indication: Coagulopathy
     Dosage: 25 MILLIGRAM
     Route: 048
     Dates: start: 20220122
  2. REVLIMID [Suspect]
     Active Substance: LENALIDOMIDE
     Indication: Prothrombin level
     Dosage: 10  MILLIGRAM
     Route: 048
     Dates: start: 202203

REACTIONS (1)
  - Rash [Recovered/Resolved]

NARRATIVE: CASE EVENT DATE: 20220201
